FAERS Safety Report 8574140-X (Version None)
Quarter: 2012Q3

REPORT INFORMATION
  Report Type: 
  Country: None (occurrence: None)
  Receive Date: 20120806
  Receipt Date: 20120727
  Transmission Date: 20120928
  Serious: Yes (Hospitalization)
  Sender: FDA-Public Use
  Company Number: JP-AMGEN-JPNSP2012035679

PATIENT
  Age: 64 Year
  Sex: Male
  Weight: 61 kg

DRUGS (7)
  1. SULFAMETHOXAZOLE AND TRIMETHOPRIM [Concomitant]
     Dosage: UNKNOWN
     Route: 048
     Dates: start: 20120522
  2. VELCADE [Suspect]
     Indication: MULTIPLE MYELOMA
     Route: 042
     Dates: start: 20120525
  3. RANMARK [Suspect]
     Indication: MULTIPLE MYELOMA
     Route: 058
     Dates: start: 20120523, end: 20120523
  4. VALTREX [Concomitant]
     Route: 048
     Dates: start: 20120522
  5. LANSOPRAZOLE [Concomitant]
     Route: 048
     Dates: start: 20120522
  6. EDIROL(ELDECALCITOL) [Concomitant]
     Route: 048
     Dates: start: 20120524
  7. VFEND [Concomitant]
     Route: 048
     Dates: start: 20120522

REACTIONS (1)
  - HYPOCALCAEMIA [None]
